FAERS Safety Report 4292114-4 (Version None)
Quarter: 2004Q1

REPORT INFORMATION
  Report Type: 
  Country: None (occurrence: None)
  Receive Date: 20040211
  Receipt Date: 20031209
  Transmission Date: 20041129
  Serious: No
  Sender: FDA-Public Use
  Company Number: US-GLAXOSMITHKLINE-A0442533A

PATIENT
  Age: 52 Year
  Sex: Female

DRUGS (5)
  1. LAMICTAL [Suspect]
     Indication: DEPRESSION
     Dosage: 100MG TWICE PER DAY
     Route: 048
     Dates: start: 20031101, end: 20031207
  2. THYROID TAB [Concomitant]
  3. HRT [Concomitant]
  4. SINGULAIR [Concomitant]
  5. ADVAIR DISKUS 100/50 [Concomitant]

REACTIONS (2)
  - HEADACHE [None]
  - VISUAL DISTURBANCE [None]
